FAERS Safety Report 15755455 (Version 1)
Quarter: 2018Q4

REPORT INFORMATION
  Report Type: Spontaneous
  Country: CO (occurrence: CO)
  Receive Date: 20181224
  Receipt Date: 20181224
  Transmission Date: 20190205
  Serious: Yes (Life-Threatening)
  Sender: FDA-Public Use
  Company Number: PHHY2018CO190444

PATIENT
  Age: 6 Year
  Sex: Male
  Weight: 18.9 kg

DRUGS (5)
  1. LEVETIRACETAM. [Concomitant]
     Active Substance: LEVETIRACETAM
     Indication: SEIZURE PROPHYLAXIS
     Route: 065
  2. ONDANSETRON [Concomitant]
     Active Substance: ONDANSETRON
     Indication: ANTIEMETIC SUPPORTIVE CARE
     Route: 065
  3. SULFAMETHOXAZOLE AND TRIMETHOPRIM [Concomitant]
     Active Substance: SULFAMETHOXAZOLE\TRIMETHOPRIM
     Indication: ANTIBIOTIC PROPHYLAXIS
     Dosage: 20 MG, BID (3 TIMES PER WEEK)
     Route: 065
  4. FLUDARABINE [Suspect]
     Active Substance: FLUDARABINE PHOSPHATE
     Indication: PROPHYLAXIS
     Dosage: 25 MG, QD
     Route: 042
  5. ACYCLOVIR. [Concomitant]
     Active Substance: ACYCLOVIR
     Indication: ANTIBIOTIC PROPHYLAXIS
     Dosage: 200 MG, TID
     Route: 065

REACTIONS (10)
  - Asthenia [Unknown]
  - Somnolence [Unknown]
  - Headache [Unknown]
  - Decreased appetite [Unknown]
  - Irritability [Unknown]
  - Blood pressure increased [Unknown]
  - Mental status changes [Unknown]
  - Partial seizures [Recovering/Resolving]
  - Posterior reversible encephalopathy syndrome [Unknown]
  - Product use in unapproved indication [Unknown]
